FAERS Safety Report 9144124 (Version 10)
Quarter: 2014Q2

REPORT INFORMATION
  Report Type: Report from Study
  Country: DE (occurrence: DE)
  Receive Date: 20130306
  Receipt Date: 20140529
  Transmission Date: 20141212
  Serious: Yes (Death, Hospitalization, Disabling)
  Sender: FDA-Public Use
  Company Number: DE-ROCHE-1194703

PATIENT
  Sex: Male

DRUGS (18)
  1. RITUXIMAB [Suspect]
     Indication: B-CELL LYMPHOMA
     Dosage: MOST RECENT DOSE PRIOR TO SAE: 10/JAN/2013
     Route: 042
     Dates: start: 20121120, end: 20130111
  2. PEGFILGRASTIM [Suspect]
     Indication: B-CELL LYMPHOMA
     Route: 058
     Dates: start: 20121129, end: 20130115
  3. CYCLOPHOSPHAMIDE [Suspect]
     Indication: B-CELL LYMPHOMA
     Route: 042
     Dates: start: 20121126, end: 20130112
  4. DOXORUBICIN [Suspect]
     Indication: B-CELL LYMPHOMA
     Route: 042
     Dates: start: 20121126, end: 20130112
  5. LIPOSOMAL VINCRISTINE [Suspect]
     Indication: B-CELL LYMPHOMA
     Route: 042
     Dates: start: 20121127, end: 20130112
  6. PREDNISONE [Suspect]
     Indication: B-CELL LYMPHOMA
     Route: 048
     Dates: start: 20121115, end: 20130116
  7. PREDNISONE [Suspect]
     Dosage: 2X25 MG
     Route: 065
  8. METAMIZOLE [Concomitant]
     Dosage: 1500 MG/D
     Route: 065
  9. VORICONAZOLE [Concomitant]
     Indication: PNEUMONIA FUNGAL
     Route: 048
     Dates: start: 20130130
  10. DIGITOXIN [Concomitant]
     Indication: ATRIAL FIBRILLATION
     Route: 048
     Dates: start: 20130204
  11. ACICLOVIR [Concomitant]
     Indication: PROPHYLAXIS
     Route: 048
     Dates: start: 20121120, end: 20130318
  12. TRIMETHOPRIM SULFA [Concomitant]
     Indication: PROPHYLAXIS
     Route: 048
     Dates: start: 20121120, end: 20130318
  13. DIGITOXIN [Concomitant]
     Indication: ATRIAL FIBRILLATION
     Route: 048
     Dates: start: 20130204, end: 20130318
  14. PANTOPRAZOLE [Concomitant]
     Dosage: 40 MG/D
     Route: 065
  15. BALDRIAN [Concomitant]
  16. SODIUM CHLORIDE TABLETS [Concomitant]
  17. MCP DROPS [Concomitant]
  18. CERTOPARIN [Concomitant]
     Dosage: 3000 IE/D
     Route: 058

REACTIONS (3)
  - Hyponatraemia [Fatal]
  - Paresis cranial nerve [Recovered/Resolved]
  - Facial paresis [Recovered/Resolved]
